FAERS Safety Report 6561615-8 (Version None)
Quarter: 2010Q1

REPORT INFORMATION
  Report Type: 
  Country: None (occurrence: None)
  Receive Date: 20100130
  Receipt Date: 20091019
  Transmission Date: 20100710
  Serious: No
  Sender: FDA-Public Use
  Company Number: US-ABBOTT-09P-163-0603981-00

PATIENT
  Sex: Female
  Weight: 126.67 kg

DRUGS (13)
  1. HUMIRA [Suspect]
     Indication: PSORIASIS
     Dates: start: 20080101
  2. INSULIN [Concomitant]
     Indication: DIABETES MELLITUS
  3. NOVOLOG [Concomitant]
     Indication: DIABETES MELLITUS
  4. GLYBURIDE AND METFORMIN HCL [Concomitant]
     Indication: DIABETES MELLITUS
  5. LYRICA [Concomitant]
     Indication: NEUROPATHY PERIPHERAL
  6. LYRICA [Concomitant]
     Indication: FIBROMYALGIA
  7. ENALAPRIL MALEATE [Concomitant]
     Indication: HYPERTENSION
  8. PREMARIN [Concomitant]
     Indication: HORMONE REPLACEMENT THERAPY
  9. PAXIL [Concomitant]
     Indication: DEPRESSION
  10. LEVOTHYROXINE SODIUM [Concomitant]
     Indication: HYPOTHYROIDISM
  11. SIMVASTATIN [Concomitant]
     Indication: HYPERCHOLESTEROLAEMIA
  12. AMBIEN [Concomitant]
     Indication: SLEEP DISORDER
  13. MULTIPLE VITAMINS [Concomitant]
     Indication: ROUTINE HEALTH MAINTENANCE

REACTIONS (1)
  - INJECTION SITE PAIN [None]
